FAERS Safety Report 8181942-0 (Version None)
Quarter: 2012Q1

REPORT INFORMATION
  Report Type: 
  Country: None (occurrence: None)
  Receive Date: 20120302
  Receipt Date: 20120217
  Transmission Date: 20120608
  Serious: Yes (Death)
  Sender: FDA-Public Use
  Company Number: PHHY2012KR016829

PATIENT

DRUGS (3)
  1. EVEROLIMUS [Suspect]
     Indication: GASTRIC CANCER
     Dosage: 10 MG/ DAY
  2. EVEROLIMUS [Suspect]
     Dosage: 05 MG/ DAY
  3. EVEROLIMUS [Suspect]
     Dosage: 05 MG/ EVERY OTHER DAY

REACTIONS (3)
  - CARDIOPULMONARY FAILURE [None]
  - HYPOXIA [None]
  - CARDIAC FAILURE [None]
